FAERS Safety Report 18872730 (Version 1)
Quarter: 2021Q1

REPORT INFORMATION
  Report Type: Spontaneous
  Country: US (occurrence: US)
  Receive Date: 20210209
  Receipt Date: 20210209
  Transmission Date: 20210420
  Serious: No
  Sender: FDA-Public Use
  Company Number: None

PATIENT
  Sex: Female

DRUGS (11)
  1. AMLODIPINE [Concomitant]
     Active Substance: AMLODIPINE BESYLATE
  2. AZITHROMYCIN ANHYDROUS. [Concomitant]
     Active Substance: AZITHROMYCIN ANHYDROUS
  3. GLIPIZIDE. [Concomitant]
     Active Substance: GLIPIZIDE
  4. RYBELSUS [Concomitant]
     Active Substance: SEMAGLUTIDE
  5. COSENTYX [Suspect]
     Active Substance: SECUKINUMAB
     Indication: PSORIASIS
     Route: 058
     Dates: start: 20200109
  6. DEXAMETHASON [Concomitant]
     Active Substance: DEXAMETHASONE
  7. ATORVASTATIN [Concomitant]
     Active Substance: ATORVASTATIN
  8. IVERMECTIN. [Concomitant]
     Active Substance: IVERMECTIN
  9. CHLORTHALID [Concomitant]
     Active Substance: CHLORTHALIDONE
  10. METFORMIN [Concomitant]
     Active Substance: METFORMIN HYDROCHLORIDE
  11. LOSARTAN POT [Concomitant]
     Active Substance: LOSARTAN POTASSIUM

REACTIONS (1)
  - COVID-19 [None]
